FAERS Safety Report 8202858-7 (Version None)
Quarter: 2012Q1

REPORT INFORMATION
  Report Type: 
  Country: None (occurrence: None)
  Receive Date: 20120312
  Receipt Date: 20120312
  Transmission Date: 20120608
  Serious: Yes (Other)
  Sender: FDA-Public Use
  Company Number: None

PATIENT
  Age: 14 Year
  Sex: Male
  Weight: 53.523 kg

DRUGS (4)
  1. RISPERIDONE [Suspect]
     Indication: OPPOSITIONAL DEFIANT DISORDER
     Dosage: .5 MG
     Route: 048
     Dates: start: 20120204, end: 20120310
  2. RISPERIDONE [Suspect]
     Indication: GENERALISED ANXIETY DISORDER
     Dosage: .5 MG
     Route: 048
     Dates: start: 20120204, end: 20120310
  3. RISPERIDONE [Suspect]
     Indication: ASPERGER'S DISORDER
     Dosage: .5 MG
     Route: 048
     Dates: start: 20120204, end: 20120310
  4. RISPERIDONE [Suspect]
     Indication: ATTENTION DEFICIT/HYPERACTIVITY DISORDER
     Dosage: .5 MG
     Route: 048
     Dates: start: 20120204, end: 20120310

REACTIONS (7)
  - MEMORY IMPAIRMENT [None]
  - VERBAL ABUSE [None]
  - ANGER [None]
  - IMPRISONMENT [None]
  - FATIGUE [None]
  - AGGRESSION [None]
  - SCREAMING [None]
